FAERS Safety Report 19648426 (Version 2)
Quarter: 2021Q3

REPORT INFORMATION
  Report Type: Spontaneous
  Country: FR (occurrence: FR)
  Receive Date: 20210802
  Receipt Date: 20210804
  Transmission Date: 20211014
  Serious: No
  Sender: FDA-Public Use
  Company Number: FR-ORGANON-O2107FRA002457

PATIENT
  Sex: Female

DRUGS (1)
  1. NEXPLANON [Suspect]
     Active Substance: ETONOGESTREL
     Dosage: 1 DOSAGE FORM (IMPLANT)
     Dates: start: 201811

REACTIONS (3)
  - Gastrectomy [Unknown]
  - Device issue [Not Recovered/Not Resolved]
  - Weight fluctuation [Unknown]
